FAERS Safety Report 17290530 (Version 1)
Quarter: 2020Q1

REPORT INFORMATION
  Report Type: Report from Study
  Country: None (occurrence: US)
  Receive Date: 20200121
  Receipt Date: 20200121
  Transmission Date: 20200409
  Serious: Yes (Other)
  Sender: FDA-Public Use
  Company Number: US-ABBVIE-20K-163-3235160-00

PATIENT
  Sex: Female

DRUGS (2)
  1. HUMIRA [Suspect]
     Active Substance: ADALIMUMAB
     Indication: PSORIASIS
  2. HUMIRA [Suspect]
     Active Substance: ADALIMUMAB
     Indication: PSORIATIC ARTHROPATHY
     Dosage: CITRATE FREE
     Route: 058

REACTIONS (8)
  - Mobility decreased [Unknown]
  - Dysphagia [Unknown]
  - Eye disorder [Recovering/Resolving]
  - Diabetic neuropathy [Recovering/Resolving]
  - Dry throat [Unknown]
  - Blood insulin abnormal [Unknown]
  - Arthritis [Unknown]
  - Pharyngitis streptococcal [Recovering/Resolving]
